FAERS Safety Report 24202257 (Version 3)
Quarter: 2024Q4

REPORT INFORMATION
  Report Type: Spontaneous
  Country: CA (occurrence: CA)
  Receive Date: 20240812
  Receipt Date: 20241226
  Transmission Date: 20250115
  Serious: Yes (Congenital Anomaly)
  Sender: BRISTOL-MYERS SQUIBB COMPANY
  Company Number: CA-BRISTOL-MYERS SQUIBB COMPANY-2024-124700

PATIENT

DRUGS (415)
  1. ORENCIA [Suspect]
     Active Substance: ABATACEPT
     Indication: Product used for unknown indication
     Route: 064
  2. ORENCIA [Suspect]
     Active Substance: ABATACEPT
     Indication: Product used for unknown indication
     Route: 064
  3. ORENCIA [Suspect]
     Active Substance: ABATACEPT
     Route: 064
  4. ORENCIA [Suspect]
     Active Substance: ABATACEPT
     Route: 064
  5. ORENCIA [Suspect]
     Active Substance: ABATACEPT
     Indication: Product used for unknown indication
     Route: 064
  6. ORENCIA [Suspect]
     Active Substance: ABATACEPT
     Route: 064
  7. ORENCIA [Suspect]
     Active Substance: ABATACEPT
     Route: 064
  8. ORENCIA [Suspect]
     Active Substance: ABATACEPT
     Route: 064
  9. ORENCIA [Suspect]
     Active Substance: ABATACEPT
     Route: 064
  10. TRIAMCINOLONE ACETONIDE [Suspect]
     Active Substance: TRIAMCINOLONE ACETONIDE
     Indication: Product used for unknown indication
     Dosage: SUSPENSION INTRA-ARTICULAR
     Route: 064
  11. TRIAMCINOLONE ACETONIDE [Suspect]
     Active Substance: TRIAMCINOLONE ACETONIDE
     Route: 064
  12. TRIAMCINOLONE ACETONIDE [Suspect]
     Active Substance: TRIAMCINOLONE ACETONIDE
     Route: 064
  13. TRIAMCINOLONE ACETONIDE [Suspect]
     Active Substance: TRIAMCINOLONE ACETONIDE
     Route: 064
  14. ACETAMINOPHEN [Concomitant]
     Active Substance: ACETAMINOPHEN
     Indication: Product used for unknown indication
     Route: 064
  15. ACETAMINOPHEN [Concomitant]
     Active Substance: ACETAMINOPHEN
     Route: 064
  16. ACETAMINOPHEN [Concomitant]
     Active Substance: ACETAMINOPHEN
     Route: 064
  17. ACETAMINOPHEN AND CODEINE [Concomitant]
     Active Substance: ACETAMINOPHEN\CODEINE PHOSPHATE
     Indication: Product used for unknown indication
     Route: 064
  18. ACTEMRA [Concomitant]
     Active Substance: TOCILIZUMAB
     Indication: Product used for unknown indication
     Route: 064
  19. ACTEMRA [Concomitant]
     Active Substance: TOCILIZUMAB
     Route: 064
  20. ACTEMRA [Concomitant]
     Active Substance: TOCILIZUMAB
     Route: 064
  21. ACTEMRA [Concomitant]
     Active Substance: TOCILIZUMAB
     Route: 064
  22. ACTEMRA [Concomitant]
     Active Substance: TOCILIZUMAB
     Route: 064
  23. ACTEMRA [Concomitant]
     Active Substance: TOCILIZUMAB
     Route: 064
  24. ACTEMRA [Concomitant]
     Active Substance: TOCILIZUMAB
     Route: 064
  25. ACTEMRA [Concomitant]
     Active Substance: TOCILIZUMAB
     Route: 064
  26. ACTEMRA [Concomitant]
     Active Substance: TOCILIZUMAB
     Route: 064
  27. ACTEMRA [Concomitant]
     Active Substance: TOCILIZUMAB
     Route: 064
  28. ACTEMRA [Concomitant]
     Active Substance: TOCILIZUMAB
     Route: 064
  29. ACTEMRA [Concomitant]
     Active Substance: TOCILIZUMAB
     Route: 064
  30. ACTEMRA [Concomitant]
     Active Substance: TOCILIZUMAB
     Route: 064
  31. ACTEMRA [Concomitant]
     Active Substance: TOCILIZUMAB
     Route: 064
  32. ACTEMRA [Concomitant]
     Active Substance: TOCILIZUMAB
     Route: 064
  33. ACTEMRA [Concomitant]
     Active Substance: TOCILIZUMAB
     Route: 064
  34. ACTEMRA [Concomitant]
     Active Substance: TOCILIZUMAB
     Route: 064
  35. ACTEMRA [Concomitant]
     Active Substance: TOCILIZUMAB
     Route: 064
  36. ACTEMRA [Concomitant]
     Active Substance: TOCILIZUMAB
     Route: 064
  37. ACTEMRA [Concomitant]
     Active Substance: TOCILIZUMAB
     Route: 064
  38. ACTEMRA [Concomitant]
     Active Substance: TOCILIZUMAB
     Route: 064
  39. ACTEMRA [Concomitant]
     Active Substance: TOCILIZUMAB
     Route: 064
  40. ACTEMRA [Concomitant]
     Active Substance: TOCILIZUMAB
     Route: 064
  41. ACTEMRA [Concomitant]
     Active Substance: TOCILIZUMAB
     Route: 064
  42. ACTEMRA [Concomitant]
     Active Substance: TOCILIZUMAB
     Route: 064
  43. ACTEMRA [Concomitant]
     Active Substance: TOCILIZUMAB
     Route: 064
  44. ADALIMUMAB [Concomitant]
     Active Substance: ADALIMUMAB
     Indication: Product used for unknown indication
     Route: 064
  45. ADALIMUMAB [Concomitant]
     Active Substance: ADALIMUMAB
     Route: 064
  46. ADALIMUMAB [Concomitant]
     Active Substance: ADALIMUMAB
     Route: 064
  47. ADALIMUMAB [Concomitant]
     Active Substance: ADALIMUMAB
     Route: 064
  48. ADALIMUMAB [Concomitant]
     Active Substance: ADALIMUMAB
     Route: 064
  49. AIMOVIG [Concomitant]
     Active Substance: ERENUMAB\ERENUMAB-AOOE
     Indication: Product used for unknown indication
     Route: 064
  50. AIMOVIG [Concomitant]
     Active Substance: ERENUMAB\ERENUMAB-AOOE
     Route: 064
  51. ALENDRONIC ACID [Concomitant]
     Active Substance: ALENDRONIC ACID
     Indication: Product used for unknown indication
     Route: 064
  52. ALENDRONIC ACID [Concomitant]
     Active Substance: ALENDRONIC ACID
     Route: 064
  53. ALENDRONIC ACID [Concomitant]
     Active Substance: ALENDRONIC ACID
     Route: 064
  54. ALENDRONIC ACID [Concomitant]
     Active Substance: ALENDRONIC ACID
     Route: 064
  55. LEFLUNOMIDE [Concomitant]
     Active Substance: LEFLUNOMIDE
     Indication: Product used for unknown indication
     Route: 064
  56. LEFLUNOMIDE [Concomitant]
     Active Substance: LEFLUNOMIDE
     Route: 064
  57. LEFLUNOMIDE [Concomitant]
     Active Substance: LEFLUNOMIDE
     Route: 064
  58. PREDNISONE [Concomitant]
     Active Substance: PREDNISONE
     Indication: Product used for unknown indication
     Route: 064
  59. PREDNISONE [Concomitant]
     Active Substance: PREDNISONE
     Route: 064
  60. PREDNISONE [Concomitant]
     Active Substance: PREDNISONE
     Route: 064
  61. PREDNISONE [Concomitant]
     Active Substance: PREDNISONE
     Route: 064
  62. PREDNISONE [Concomitant]
     Active Substance: PREDNISONE
     Route: 064
  63. PREDNISONE [Concomitant]
     Active Substance: PREDNISONE
     Route: 064
  64. PREDNISONE [Concomitant]
     Active Substance: PREDNISONE
     Route: 064
  65. PREDNISONE [Concomitant]
     Active Substance: PREDNISONE
     Route: 064
  66. APREMILAST [Concomitant]
     Active Substance: APREMILAST
     Indication: Product used for unknown indication
     Route: 064
  67. APREMILAST [Concomitant]
     Active Substance: APREMILAST
     Route: 064
  68. ARAVA [Concomitant]
     Active Substance: LEFLUNOMIDE
     Indication: Product used for unknown indication
     Route: 064
  69. ARAVA [Concomitant]
     Active Substance: LEFLUNOMIDE
     Route: 064
  70. ARAVA [Concomitant]
     Active Substance: LEFLUNOMIDE
     Route: 064
  71. ARAVA [Concomitant]
     Active Substance: LEFLUNOMIDE
     Route: 064
  72. ATOMOXETINE [Concomitant]
     Active Substance: ATOMOXETINE HYDROCHLORIDE
     Indication: Product used for unknown indication
     Route: 064
  73. AZATHIOPRINE SODIUM [Concomitant]
     Active Substance: AZATHIOPRINE SODIUM
     Indication: Product used for unknown indication
     Route: 064
  74. BERINERT [Concomitant]
     Active Substance: HUMAN C1-ESTERASE INHIBITOR
     Indication: Product used for unknown indication
     Route: 064
  75. BOTULINUM TOXIN TYPE A [Concomitant]
     Active Substance: BOTULINUM TOXIN TYPE A
     Indication: Product used for unknown indication
     Route: 064
  76. BUTRANS [Concomitant]
     Active Substance: BUPRENORPHINE
     Indication: Product used for unknown indication
     Route: 064
  77. CALCIUM ASCORBATE [Concomitant]
     Active Substance: CALCIUM ASCORBATE
     Indication: Product used for unknown indication
     Route: 064
  78. CANDESARTAN [Concomitant]
     Active Substance: CANDESARTAN
     Indication: Product used for unknown indication
     Route: 064
  79. CELEBREX [Concomitant]
     Active Substance: CELECOXIB
     Indication: Product used for unknown indication
     Route: 064
  80. CELEBREX [Concomitant]
     Active Substance: CELECOXIB
     Route: 064
  81. CERTOLIZUMAB PEGOL [Concomitant]
     Active Substance: CERTOLIZUMAB PEGOL
     Indication: Product used for unknown indication
     Route: 064
  82. CERTOLIZUMAB PEGOL [Concomitant]
     Active Substance: CERTOLIZUMAB PEGOL
     Route: 064
  83. CERTOLIZUMAB PEGOL [Concomitant]
     Active Substance: CERTOLIZUMAB PEGOL
     Route: 064
  84. CERTOLIZUMAB PEGOL [Concomitant]
     Active Substance: CERTOLIZUMAB PEGOL
     Route: 064
  85. CERTOLIZUMAB PEGOL [Concomitant]
     Active Substance: CERTOLIZUMAB PEGOL
     Route: 064
  86. CETIRIZINE HYDROCHLORIDE [Concomitant]
     Active Substance: CETIRIZINE HYDROCHLORIDE
     Indication: Product used for unknown indication
     Route: 064
  87. CETIRIZINE HYDROCHLORIDE [Concomitant]
     Active Substance: CETIRIZINE HYDROCHLORIDE
     Route: 064
  88. CETIRIZINE HYDROCHLORIDE [Concomitant]
     Active Substance: CETIRIZINE HYDROCHLORIDE
     Route: 064
  89. CETIRIZINE HYDROCHLORIDE [Concomitant]
     Active Substance: CETIRIZINE HYDROCHLORIDE
     Route: 064
  90. CETIRIZINE HYDROCHLORIDE [Concomitant]
     Active Substance: CETIRIZINE HYDROCHLORIDE
     Route: 064
  91. CETIRIZINE HYDROCHLORIDE [Concomitant]
     Active Substance: CETIRIZINE HYDROCHLORIDE
     Route: 064
  92. CETIRIZINE HYDROCHLORIDE [Concomitant]
     Active Substance: CETIRIZINE HYDROCHLORIDE
     Route: 064
  93. CETIRIZINE HYDROCHLORIDE [Concomitant]
     Active Substance: CETIRIZINE HYDROCHLORIDE
     Route: 064
  94. CETIRIZINE HYDROCHLORIDE [Concomitant]
     Active Substance: CETIRIZINE HYDROCHLORIDE
     Route: 064
  95. CETIRIZINE HYDROCHLORIDE [Concomitant]
     Active Substance: CETIRIZINE HYDROCHLORIDE
     Route: 064
  96. CETIRIZINE HYDROCHLORIDE [Concomitant]
     Active Substance: CETIRIZINE HYDROCHLORIDE
     Route: 064
  97. CETIRIZINE HYDROCHLORIDE [Concomitant]
     Active Substance: CETIRIZINE HYDROCHLORIDE
     Route: 064
  98. CETIRIZINE HYDROCHLORIDE [Concomitant]
     Active Substance: CETIRIZINE HYDROCHLORIDE
     Route: 064
  99. CETIRIZINE HYDROCHLORIDE [Concomitant]
     Active Substance: CETIRIZINE HYDROCHLORIDE
     Route: 064
  100. CETIRIZINE HYDROCHLORIDE [Concomitant]
     Active Substance: CETIRIZINE HYDROCHLORIDE
     Route: 064
  101. CETIRIZINE HYDROCHLORIDE [Concomitant]
     Active Substance: CETIRIZINE HYDROCHLORIDE
     Route: 064
  102. CETIRIZINE HYDROCHLORIDE [Concomitant]
     Active Substance: CETIRIZINE HYDROCHLORIDE
     Route: 064
  103. CHOLECALCIFEROL [Concomitant]
     Active Substance: CHOLECALCIFEROL
     Indication: Product used for unknown indication
     Route: 064
  104. CIMZIA [Concomitant]
     Active Substance: CERTOLIZUMAB PEGOL
     Indication: Product used for unknown indication
     Route: 064
  105. CIMZIA [Concomitant]
     Active Substance: CERTOLIZUMAB PEGOL
     Route: 064
  106. CIMZIA [Concomitant]
     Active Substance: CERTOLIZUMAB PEGOL
     Route: 064
  107. CIMZIA [Concomitant]
     Active Substance: CERTOLIZUMAB PEGOL
     Route: 064
  108. CIMZIA [Concomitant]
     Active Substance: CERTOLIZUMAB PEGOL
     Route: 064
  109. CIMZIA [Concomitant]
     Active Substance: CERTOLIZUMAB PEGOL
     Route: 064
  110. CIMZIA [Concomitant]
     Active Substance: CERTOLIZUMAB PEGOL
     Route: 064
  111. CIMZIA [Concomitant]
     Active Substance: CERTOLIZUMAB PEGOL
     Route: 064
  112. CORTISONE ACETATE [Concomitant]
     Active Substance: CORTISONE ACETATE
     Indication: Product used for unknown indication
     Route: 064
  113. CORTISONE ACETATE [Concomitant]
     Active Substance: CORTISONE ACETATE
     Route: 064
  114. CORTISONE ACETATE [Concomitant]
     Active Substance: CORTISONE ACETATE
     Route: 064
  115. CORTISONE ACETATE [Concomitant]
     Active Substance: CORTISONE ACETATE
     Route: 064
  116. CORTISONE ACETATE [Concomitant]
     Active Substance: CORTISONE ACETATE
     Route: 064
  117. COSENTYX [Concomitant]
     Active Substance: SECUKINUMAB
     Indication: Product used for unknown indication
     Route: 064
  118. COSENTYX [Concomitant]
     Active Substance: SECUKINUMAB
     Route: 064
  119. COSENTYX [Concomitant]
     Active Substance: SECUKINUMAB
     Route: 064
  120. COSENTYX [Concomitant]
     Active Substance: SECUKINUMAB
     Dosage: PRE FILLEDSYRINGE
     Route: 064
  121. DESOXIMETASONE [Concomitant]
     Active Substance: DESOXIMETASONE
     Indication: Product used for unknown indication
     Route: 064
  122. DESOXIMETASONE [Concomitant]
     Active Substance: DESOXIMETASONE
     Route: 064
  123. DESOXIMETASONE [Concomitant]
     Active Substance: DESOXIMETASONE
     Route: 064
  124. DESOXIMETASONE [Concomitant]
     Active Substance: DESOXIMETASONE
     Route: 064
  125. DESOXIMETASONE [Concomitant]
     Active Substance: DESOXIMETASONE
     Route: 064
  126. DESOXIMETASONE [Concomitant]
     Active Substance: DESOXIMETASONE
     Route: 064
  127. DESOXIMETASONE [Concomitant]
     Active Substance: DESOXIMETASONE
     Route: 064
  128. DESOXIMETASONE [Concomitant]
     Active Substance: DESOXIMETASONE
     Route: 064
  129. DICLOFENAC DIETHYLAMINE [Concomitant]
     Active Substance: DICLOFENAC DIETHYLAMINE
     Indication: Product used for unknown indication
     Route: 064
  130. DICLOFENAC SODIUM [Concomitant]
     Active Substance: DICLOFENAC SODIUM
     Indication: Product used for unknown indication
     Route: 064
  131. DICLOFENAC SODIUM [Concomitant]
     Active Substance: DICLOFENAC SODIUM
     Route: 064
  132. DICLOFENAC SODIUM [Concomitant]
     Active Substance: DICLOFENAC SODIUM
     Route: 064
  133. DOMPERIDONE MALEATE [Concomitant]
     Active Substance: DOMPERIDONE MALEATE
     Indication: Product used for unknown indication
     Route: 064
  134. ENBREL [Concomitant]
     Active Substance: ETANERCEPT
     Indication: Product used for unknown indication
     Route: 064
  135. ENBREL [Concomitant]
     Active Substance: ETANERCEPT
     Route: 064
  136. ENBREL [Concomitant]
     Active Substance: ETANERCEPT
     Route: 064
  137. ENBREL [Concomitant]
     Active Substance: ETANERCEPT
     Route: 064
  138. ENBREL [Concomitant]
     Active Substance: ETANERCEPT
     Route: 064
  139. ENBREL [Concomitant]
     Active Substance: ETANERCEPT
     Route: 064
  140. ERELZI [Concomitant]
     Active Substance: ETANERCEPT-SZZS
     Indication: Product used for unknown indication
     Route: 064
  141. ERELZI [Concomitant]
     Active Substance: ETANERCEPT-SZZS
     Route: 064
  142. ERELZI [Concomitant]
     Active Substance: ETANERCEPT-SZZS
     Route: 064
  143. ERELZI [Concomitant]
     Active Substance: ETANERCEPT-SZZS
     Route: 064
  144. FLUMETHASONE [Concomitant]
     Active Substance: FLUMETHASONE
     Indication: Product used for unknown indication
     Route: 064
  145. FLUMETHASONE PIVALATE [Concomitant]
     Active Substance: FLUMETHASONE PIVALATE
     Indication: Product used for unknown indication
     Route: 064
  146. FLUMETHASONE PIVALATE [Concomitant]
     Active Substance: FLUMETHASONE PIVALATE
     Route: 064
  147. FLUMETHASONE PIVALATE [Concomitant]
     Active Substance: FLUMETHASONE PIVALATE
     Route: 064
  148. FOSAMAX [Concomitant]
     Active Substance: ALENDRONATE SODIUM
     Indication: Product used for unknown indication
     Route: 064
  149. FOSAMAX [Concomitant]
     Active Substance: ALENDRONATE SODIUM
     Route: 064
  150. FOSAMAX [Concomitant]
     Active Substance: ALENDRONATE SODIUM
     Route: 064
  151. FOSAMAX [Concomitant]
     Active Substance: ALENDRONATE SODIUM
     Route: 064
  152. FOSAMAX [Concomitant]
     Active Substance: ALENDRONATE SODIUM
     Route: 064
  153. GOLD [Concomitant]
     Active Substance: GOLD
     Indication: Product used for unknown indication
     Route: 064
  154. GOLD SODIUM THIOMALATE [Concomitant]
     Active Substance: GOLD SODIUM THIOMALATE
     Indication: Product used for unknown indication
     Route: 064
  155. GOLIMUMAB [Concomitant]
     Active Substance: GOLIMUMAB
     Indication: Product used for unknown indication
     Route: 064
  156. GOLIMUMAB [Concomitant]
     Active Substance: GOLIMUMAB
     Route: 064
  157. HUMIRA [Concomitant]
     Active Substance: ADALIMUMAB
     Indication: Product used for unknown indication
     Route: 064
  158. HUMIRA [Concomitant]
     Active Substance: ADALIMUMAB
     Route: 064
  159. HUMIRA [Concomitant]
     Active Substance: ADALIMUMAB
     Route: 064
  160. HUMIRA [Concomitant]
     Active Substance: ADALIMUMAB
     Route: 064
  161. HUMIRA [Concomitant]
     Active Substance: ADALIMUMAB
     Route: 064
  162. HYDROCORTISONE [Concomitant]
     Active Substance: HYDROCORTISONE
     Indication: Product used for unknown indication
     Route: 064
  163. HYDROXYCHLOROQUINE [Concomitant]
     Active Substance: HYDROXYCHLOROQUINE
     Indication: Product used for unknown indication
     Route: 064
  164. HYDROXYCHLOROQUINE [Concomitant]
     Active Substance: HYDROXYCHLOROQUINE
     Route: 064
  165. HYDROXYCHLOROQUINE [Concomitant]
     Active Substance: HYDROXYCHLOROQUINE
     Route: 064
  166. HYDROXYCHLOROQUINE [Concomitant]
     Active Substance: HYDROXYCHLOROQUINE
     Route: 064
  167. HYDROXYCHLOROQUINE [Concomitant]
     Active Substance: HYDROXYCHLOROQUINE
     Route: 064
  168. HYDROXYCHLOROQUINE [Concomitant]
     Active Substance: HYDROXYCHLOROQUINE
     Route: 064
  169. HYDROXYCHLOROQUINE [Concomitant]
     Active Substance: HYDROXYCHLOROQUINE
     Route: 064
  170. HYDROXYCHLOROQUINE [Concomitant]
     Active Substance: HYDROXYCHLOROQUINE
     Route: 064
  171. HYDROXYCHLOROQUINE [Concomitant]
     Active Substance: HYDROXYCHLOROQUINE
     Route: 064
  172. HYDROXYCHLOROQUINE SULFATE [Concomitant]
     Active Substance: HYDROXYCHLOROQUINE SULFATE
     Indication: Product used for unknown indication
     Route: 064
  173. HYDROXYCHLOROQUINE SULFATE [Concomitant]
     Active Substance: HYDROXYCHLOROQUINE SULFATE
     Route: 064
  174. HYDROXYCHLOROQUINE SULFATE [Concomitant]
     Active Substance: HYDROXYCHLOROQUINE SULFATE
     Route: 064
  175. HYDROXYCHLOROQUINE SULFATE [Concomitant]
     Active Substance: HYDROXYCHLOROQUINE SULFATE
     Route: 064
  176. HYDROXYCHLOROQUINE SULFATE [Concomitant]
     Active Substance: HYDROXYCHLOROQUINE SULFATE
     Route: 064
  177. HYDROXYCHLOROQUINE SULFATE [Concomitant]
     Active Substance: HYDROXYCHLOROQUINE SULFATE
     Route: 064
  178. HYDROXYCHLOROQUINE SULFATE [Concomitant]
     Active Substance: HYDROXYCHLOROQUINE SULFATE
     Route: 064
  179. HYDROXYCHLOROQUINE SULFATE [Concomitant]
     Active Substance: HYDROXYCHLOROQUINE SULFATE
     Route: 064
  180. HYDROXYCHLOROQUINE SULFATE [Concomitant]
     Active Substance: HYDROXYCHLOROQUINE SULFATE
     Route: 064
  181. INFLIXIMAB [Concomitant]
     Active Substance: INFLIXIMAB
     Indication: Product used for unknown indication
     Route: 064
  182. INFLIXIMAB [Concomitant]
     Active Substance: INFLIXIMAB
     Route: 064
  183. INFLIXIMAB [Concomitant]
     Active Substance: INFLIXIMAB
     Route: 064
  184. INFLIXIMAB [Concomitant]
     Active Substance: INFLIXIMAB
     Route: 064
  185. INFLIXIMAB [Concomitant]
     Active Substance: INFLIXIMAB
     Route: 064
  186. LAMICTAL [Concomitant]
     Active Substance: LAMOTRIGINE
     Indication: Product used for unknown indication
     Route: 064
  187. LAMICTAL [Concomitant]
     Active Substance: LAMOTRIGINE
     Route: 064
  188. LEFLUNOMIDE [Concomitant]
     Active Substance: LEFLUNOMIDE
     Indication: Product used for unknown indication
     Route: 064
  189. LEFLUNOMIDE [Concomitant]
     Active Substance: LEFLUNOMIDE
     Route: 064
  190. LEFLUNOMIDE [Concomitant]
     Active Substance: LEFLUNOMIDE
     Route: 064
  191. LEFLUNOMIDE [Concomitant]
     Active Substance: LEFLUNOMIDE
     Route: 064
  192. LEFLUNOMIDE [Concomitant]
     Active Substance: LEFLUNOMIDE
     Route: 064
  193. LEFLUNOMIDE [Concomitant]
     Active Substance: LEFLUNOMIDE
     Route: 064
  194. LEFLUNOMIDE [Concomitant]
     Active Substance: LEFLUNOMIDE
     Route: 064
  195. LEFLUNOMIDE [Concomitant]
     Active Substance: LEFLUNOMIDE
     Route: 064
  196. LEFLUNOMIDE [Concomitant]
     Active Substance: LEFLUNOMIDE
     Route: 064
  197. LEFLUNOMIDE [Concomitant]
     Active Substance: LEFLUNOMIDE
     Route: 064
  198. LEFLUNOMIDE [Concomitant]
     Active Substance: LEFLUNOMIDE
     Route: 064
  199. METFORMIN HYDROCHLORIDE [Concomitant]
     Active Substance: METFORMIN HYDROCHLORIDE
     Indication: Product used for unknown indication
     Route: 064
  200. METHOTREXATE [Concomitant]
     Active Substance: METHOTREXATE
     Indication: Product used for unknown indication
     Route: 064
  201. METHOTREXATE [Concomitant]
     Active Substance: METHOTREXATE
     Route: 064
  202. METHOTREXATE [Concomitant]
     Active Substance: METHOTREXATE
     Route: 064
  203. METHOTREXATE [Concomitant]
     Active Substance: METHOTREXATE
     Route: 064
  204. METHOTREXATE [Concomitant]
     Active Substance: METHOTREXATE
     Route: 064
  205. METHOTREXATE [Concomitant]
     Active Substance: METHOTREXATE
     Route: 064
  206. METHOTREXATE [Concomitant]
     Active Substance: METHOTREXATE
     Route: 064
  207. METHOTREXATE [Concomitant]
     Active Substance: METHOTREXATE
     Route: 064
  208. METHOTREXATE [Concomitant]
     Active Substance: METHOTREXATE
     Route: 064
  209. METHOTREXATE [Concomitant]
     Active Substance: METHOTREXATE
     Route: 064
  210. METHOTREXATE [Concomitant]
     Active Substance: METHOTREXATE
     Route: 064
  211. METHOTREXATE [Concomitant]
     Active Substance: METHOTREXATE
     Route: 064
  212. METHOTREXATE [Concomitant]
     Active Substance: METHOTREXATE
     Route: 064
  213. METHOTREXATE [Concomitant]
     Active Substance: METHOTREXATE
     Route: 064
  214. METHOTREXATE [Concomitant]
     Active Substance: METHOTREXATE
     Route: 064
  215. METHOTREXATE [Concomitant]
     Active Substance: METHOTREXATE
     Route: 064
  216. METHOTREXATE [Concomitant]
     Active Substance: METHOTREXATE
     Route: 064
  217. METHOTREXATE [Concomitant]
     Active Substance: METHOTREXATE
     Route: 064
  218. METHOTREXATE [Concomitant]
     Active Substance: METHOTREXATE
     Route: 064
  219. METHOTREXATE [Concomitant]
     Active Substance: METHOTREXATE
     Route: 064
  220. METHYLPREDNISOLONE [Concomitant]
     Active Substance: METHYLPREDNISOLONE
     Indication: Product used for unknown indication
     Route: 064
  221. METHYLPREDNISOLONE SODIUM SUCCINATE [Concomitant]
     Active Substance: METHYLPREDNISOLONE SODIUM SUCCINATE
     Indication: Product used for unknown indication
     Route: 064
  222. MINOCYCLINE [Concomitant]
     Active Substance: MINOCYCLINE HYDROCHLORIDE
     Indication: Product used for unknown indication
     Route: 064
  223. MINOCYCLINE HYDROCHLORIDE [Concomitant]
     Active Substance: MINOCYCLINE HYDROCHLORIDE
     Indication: Product used for unknown indication
     Route: 064
  224. MINOCYCLINE HYDROCHLORIDE [Concomitant]
     Active Substance: MINOCYCLINE HYDROCHLORIDE
     Route: 064
  225. MYRBETRIQ [Concomitant]
     Active Substance: MIRABEGRON
     Indication: Product used for unknown indication
     Route: 064
  226. MYRBETRIQ [Concomitant]
     Active Substance: MIRABEGRON
     Route: 064
  227. MYRBETRIQ [Concomitant]
     Active Substance: MIRABEGRON
     Route: 064
  228. NAPROXEN [Concomitant]
     Active Substance: NAPROXEN
     Indication: Product used for unknown indication
     Route: 064
  229. NAPROXEN SODIUM [Concomitant]
     Active Substance: NAPROXEN SODIUM
     Indication: Product used for unknown indication
     Route: 064
  230. NUCALA [Concomitant]
     Active Substance: MEPOLIZUMAB
     Indication: Product used for unknown indication
     Route: 064
  231. OXYCODONE [Concomitant]
     Active Substance: OXYCODONE
     Indication: Product used for unknown indication
     Route: 064
  232. OXYCODONE TEREPHTHALATE [Concomitant]
     Active Substance: OXYCODONE TEREPHTHALATE
     Indication: Product used for unknown indication
     Route: 064
  233. PHENYLEPHRINE HYDROCHLORIDE [Concomitant]
     Active Substance: PHENYLEPHRINE HYDROCHLORIDE
     Indication: Product used for unknown indication
     Route: 064
  234. PHTHALYLSULFATHIAZOLE [Concomitant]
     Active Substance: PHTHALYLSULFATHIAZOLE
     Indication: Product used for unknown indication
     Route: 064
  235. PHTHALYLSULFATHIAZOLE [Concomitant]
     Active Substance: PHTHALYLSULFATHIAZOLE
     Route: 064
  236. PHTHALYLSULFATHIAZOLE [Concomitant]
     Active Substance: PHTHALYLSULFATHIAZOLE
     Route: 064
  237. PHTHALYLSULFATHIAZOLE [Concomitant]
     Active Substance: PHTHALYLSULFATHIAZOLE
     Route: 064
  238. PHTHALYLSULFATHIAZOLE [Concomitant]
     Active Substance: PHTHALYLSULFATHIAZOLE
     Route: 064
  239. PHTHALYLSULFATHIAZOLE [Concomitant]
     Active Substance: PHTHALYLSULFATHIAZOLE
     Route: 064
  240. PHTHALYLSULFATHIAZOLE [Concomitant]
     Active Substance: PHTHALYLSULFATHIAZOLE
     Route: 064
  241. PHTHALYLSULFATHIAZOLE [Concomitant]
     Active Substance: PHTHALYLSULFATHIAZOLE
     Route: 064
  242. PREDNISONE [Concomitant]
     Active Substance: PREDNISONE
     Indication: Product used for unknown indication
     Route: 064
  243. PREDNISONE [Concomitant]
     Active Substance: PREDNISONE
     Route: 064
  244. PREDNISONE [Concomitant]
     Active Substance: PREDNISONE
     Route: 064
  245. PREDNISONE [Concomitant]
     Active Substance: PREDNISONE
     Route: 064
  246. PREDNISONE [Concomitant]
     Active Substance: PREDNISONE
     Route: 064
  247. PREDNISONE [Concomitant]
     Active Substance: PREDNISONE
     Route: 064
  248. PREDNISONE [Concomitant]
     Active Substance: PREDNISONE
     Route: 064
  249. PREDNISONE [Concomitant]
     Active Substance: PREDNISONE
     Route: 064
  250. PREDNISONE [Concomitant]
     Active Substance: PREDNISONE
     Route: 064
  251. PREDNISONE [Concomitant]
     Active Substance: PREDNISONE
     Route: 064
  252. PREDNISONE [Concomitant]
     Active Substance: PREDNISONE
     Route: 064
  253. PREDNISONE [Concomitant]
     Active Substance: PREDNISONE
     Route: 064
  254. PREDNISONE [Concomitant]
     Active Substance: PREDNISONE
     Route: 064
  255. PREDNISONE [Concomitant]
     Active Substance: PREDNISONE
     Route: 064
  256. PREDNISONE [Concomitant]
     Active Substance: PREDNISONE
     Route: 064
  257. PREDNISONE [Concomitant]
     Active Substance: PREDNISONE
     Route: 064
  258. PSEUDOEPHEDRINE HYDROCHLORIDE [Concomitant]
     Active Substance: PSEUDOEPHEDRINE HYDROCHLORIDE
     Indication: Product used for unknown indication
     Route: 064
  259. PSEUDOEPHEDRINE HYDROCHLORIDE [Concomitant]
     Active Substance: PSEUDOEPHEDRINE HYDROCHLORIDE
     Route: 064
  260. PSEUDOEPHEDRINE HYDROCHLORIDE [Concomitant]
     Active Substance: PSEUDOEPHEDRINE HYDROCHLORIDE
     Route: 064
  261. PSEUDOEPHEDRINE HYDROCHLORIDE [Concomitant]
     Active Substance: PSEUDOEPHEDRINE HYDROCHLORIDE
     Route: 064
  262. RAMIPRIL [Concomitant]
     Active Substance: RAMIPRIL
     Indication: Product used for unknown indication
     Route: 064
  263. RAMIPRIL [Concomitant]
     Active Substance: RAMIPRIL
     Route: 064
  264. RAMIPRIL [Concomitant]
     Active Substance: RAMIPRIL
     Route: 064
  265. RAMIPRIL [Concomitant]
     Active Substance: RAMIPRIL
     Route: 064
  266. RANITIDINE [Concomitant]
     Active Substance: RANITIDINE
     Indication: Product used for unknown indication
     Route: 064
  267. CETIRIZINE HYDROCHLORIDE\PSEUDOEPHEDRINE HYDROCHLORIDE [Concomitant]
     Active Substance: CETIRIZINE HYDROCHLORIDE\PSEUDOEPHEDRINE HYDROCHLORIDE
     Indication: Product used for unknown indication
     Route: 064
  268. CETIRIZINE HYDROCHLORIDE\PSEUDOEPHEDRINE HYDROCHLORIDE [Concomitant]
     Active Substance: CETIRIZINE HYDROCHLORIDE\PSEUDOEPHEDRINE HYDROCHLORIDE
     Route: 064
  269. CETIRIZINE HYDROCHLORIDE\PSEUDOEPHEDRINE HYDROCHLORIDE [Concomitant]
     Active Substance: CETIRIZINE HYDROCHLORIDE\PSEUDOEPHEDRINE HYDROCHLORIDE
     Route: 064
  270. CETIRIZINE HYDROCHLORIDE\PSEUDOEPHEDRINE HYDROCHLORIDE [Concomitant]
     Active Substance: CETIRIZINE HYDROCHLORIDE\PSEUDOEPHEDRINE HYDROCHLORIDE
     Route: 064
  271. CETIRIZINE HYDROCHLORIDE\PSEUDOEPHEDRINE HYDROCHLORIDE [Concomitant]
     Active Substance: CETIRIZINE HYDROCHLORIDE\PSEUDOEPHEDRINE HYDROCHLORIDE
     Route: 064
  272. CETIRIZINE HYDROCHLORIDE\PSEUDOEPHEDRINE HYDROCHLORIDE [Concomitant]
     Active Substance: CETIRIZINE HYDROCHLORIDE\PSEUDOEPHEDRINE HYDROCHLORIDE
     Route: 064
  273. CETIRIZINE HYDROCHLORIDE\PSEUDOEPHEDRINE HYDROCHLORIDE [Concomitant]
     Active Substance: CETIRIZINE HYDROCHLORIDE\PSEUDOEPHEDRINE HYDROCHLORIDE
     Route: 064
  274. REMICADE [Concomitant]
     Active Substance: INFLIXIMAB
     Indication: Product used for unknown indication
     Route: 064
  275. REMICADE [Concomitant]
     Active Substance: INFLIXIMAB
     Route: 064
  276. REMICADE [Concomitant]
     Active Substance: INFLIXIMAB
     Route: 064
  277. REMICADE [Concomitant]
     Active Substance: INFLIXIMAB
     Route: 064
  278. REMICADE [Concomitant]
     Active Substance: INFLIXIMAB
     Route: 064
  279. REMICADE [Concomitant]
     Active Substance: INFLIXIMAB
     Route: 064
  280. REMICADE [Concomitant]
     Active Substance: INFLIXIMAB
     Route: 064
  281. REMICADE [Concomitant]
     Active Substance: INFLIXIMAB
     Route: 064
  282. REMICADE [Concomitant]
     Active Substance: INFLIXIMAB
     Route: 064
  283. REMICADE [Concomitant]
     Active Substance: INFLIXIMAB
     Route: 064
  284. RITUXIMAB [Concomitant]
     Active Substance: RITUXIMAB
     Indication: Product used for unknown indication
     Route: 064
  285. RITUXIMAB [Concomitant]
     Active Substance: RITUXIMAB
     Route: 064
  286. RITUXIMAB [Concomitant]
     Active Substance: RITUXIMAB
     Route: 064
  287. RITUXIMAB [Concomitant]
     Active Substance: RITUXIMAB
     Route: 064
  288. RITUXIMAB [Concomitant]
     Active Substance: RITUXIMAB
     Route: 064
  289. RITUXIMAB [Concomitant]
     Active Substance: RITUXIMAB
     Route: 064
  290. RITUXIMAB [Concomitant]
     Active Substance: RITUXIMAB
     Route: 064
  291. RITUXIMAB [Concomitant]
     Active Substance: RITUXIMAB
     Route: 064
  292. RITUXIMAB [Concomitant]
     Active Substance: RITUXIMAB
     Route: 064
  293. RITUXIMAB [Concomitant]
     Active Substance: RITUXIMAB
     Route: 064
  294. SULFASALAZINE [Concomitant]
     Active Substance: SULFASALAZINE
     Indication: Product used for unknown indication
     Route: 064
  295. SIMPONI [Concomitant]
     Active Substance: GOLIMUMAB
     Indication: Product used for unknown indication
     Route: 064
  296. SIMPONI [Concomitant]
     Active Substance: GOLIMUMAB
     Route: 064
  297. SIMPONI [Concomitant]
     Active Substance: GOLIMUMAB
     Route: 064
  298. SIMPONI [Concomitant]
     Active Substance: GOLIMUMAB
     Route: 064
  299. SIMPONI [Concomitant]
     Active Substance: GOLIMUMAB
     Route: 064
  300. SIMPONI [Concomitant]
     Active Substance: GOLIMUMAB
     Route: 064
  301. SIMPONI [Concomitant]
     Active Substance: GOLIMUMAB
     Route: 064
  302. SIRUKUMAB [Concomitant]
     Active Substance: SIRUKUMAB
     Indication: Product used for unknown indication
     Route: 064
  303. GOLD SODIUM THIOMALATE [Concomitant]
     Active Substance: GOLD SODIUM THIOMALATE
     Indication: Product used for unknown indication
     Route: 064
  304. GOLD SODIUM THIOMALATE [Concomitant]
     Active Substance: GOLD SODIUM THIOMALATE
     Route: 064
  305. STELARA [Concomitant]
     Active Substance: USTEKINUMAB
     Indication: Product used for unknown indication
     Route: 064
  306. STELARA [Concomitant]
     Active Substance: USTEKINUMAB
     Route: 064
  307. STELARA [Concomitant]
     Active Substance: USTEKINUMAB
     Dosage: SOLUTION SUBCUTANEOUS
     Route: 064
  308. STELARA [Concomitant]
     Active Substance: USTEKINUMAB
     Route: 064
  309. STELARA [Concomitant]
     Active Substance: USTEKINUMAB
     Route: 064
  310. SULFASALAZINE [Concomitant]
     Active Substance: SULFASALAZINE
     Indication: Product used for unknown indication
     Route: 064
  311. SULFASALAZINE [Concomitant]
     Active Substance: SULFASALAZINE
     Route: 064
  312. SULFASALAZINE [Concomitant]
     Active Substance: SULFASALAZINE
     Route: 064
  313. SULFASALAZINE [Concomitant]
     Active Substance: SULFASALAZINE
     Route: 064
  314. SULFASALAZINE [Concomitant]
     Active Substance: SULFASALAZINE
     Route: 064
  315. SULFASALAZINE [Concomitant]
     Active Substance: SULFASALAZINE
     Route: 064
  316. SULFASALAZINE [Concomitant]
     Active Substance: SULFASALAZINE
     Route: 064
  317. SULFASALAZINE [Concomitant]
     Active Substance: SULFASALAZINE
     Route: 064
  318. SULFASALAZINE [Concomitant]
     Active Substance: SULFASALAZINE
     Route: 064
  319. SULFASALAZINE [Concomitant]
     Active Substance: SULFASALAZINE
     Route: 064
  320. SULFASALAZINE [Concomitant]
     Active Substance: SULFASALAZINE
     Route: 064
  321. SULFASALAZINE [Concomitant]
     Active Substance: SULFASALAZINE
     Route: 064
  322. SULFASALAZINE [Concomitant]
     Active Substance: SULFASALAZINE
     Route: 064
  323. SULFASALAZINE [Concomitant]
     Active Substance: SULFASALAZINE
     Route: 064
  324. SULFASALAZINE [Concomitant]
     Active Substance: SULFASALAZINE
     Route: 064
  325. SULFASALAZINE [Concomitant]
     Active Substance: SULFASALAZINE
     Route: 064
  326. SULFASALAZINE [Concomitant]
     Active Substance: SULFASALAZINE
     Route: 064
  327. SULFASALAZINE [Concomitant]
     Active Substance: SULFASALAZINE
     Route: 064
  328. SULFASALAZINE [Concomitant]
     Active Substance: SULFASALAZINE
     Route: 064
  329. SULFASALAZINE [Concomitant]
     Active Substance: SULFASALAZINE
     Route: 064
  330. SULFASALAZINE [Concomitant]
     Active Substance: SULFASALAZINE
     Route: 064
  331. SULFASALAZINE [Concomitant]
     Active Substance: SULFASALAZINE
     Route: 064
  332. SULFASALAZINE [Concomitant]
     Active Substance: SULFASALAZINE
     Route: 064
  333. TOCILIZUMAB [Concomitant]
     Active Substance: TOCILIZUMAB
     Indication: Product used for unknown indication
     Route: 064
  334. TOCILIZUMAB [Concomitant]
     Active Substance: TOCILIZUMAB
     Route: 064
  335. TOCILIZUMAB [Concomitant]
     Active Substance: TOCILIZUMAB
     Route: 064
  336. TOCILIZUMAB [Concomitant]
     Active Substance: TOCILIZUMAB
     Route: 064
  337. TOCILIZUMAB [Concomitant]
     Active Substance: TOCILIZUMAB
     Route: 064
  338. TOCILIZUMAB [Concomitant]
     Active Substance: TOCILIZUMAB
     Route: 064
  339. TOCILIZUMAB [Concomitant]
     Active Substance: TOCILIZUMAB
     Route: 064
  340. TOFACITINIB [Concomitant]
     Active Substance: TOFACITINIB
     Indication: Product used for unknown indication
     Route: 064
  341. TOFACITINIB [Concomitant]
     Active Substance: TOFACITINIB
     Route: 064
  342. TOFACITINIB CITRATE [Concomitant]
     Active Substance: TOFACITINIB CITRATE
     Indication: Product used for unknown indication
     Route: 064
  343. TOFACITINIB CITRATE [Concomitant]
     Active Substance: TOFACITINIB CITRATE
     Route: 064
  344. TOPIRAMATE [Concomitant]
     Active Substance: TOPIRAMATE
     Indication: Product used for unknown indication
     Route: 064
  345. TOPIRAMATE [Concomitant]
     Active Substance: TOPIRAMATE
     Route: 064
  346. TOPIRAMATE [Concomitant]
     Active Substance: TOPIRAMATE
     Route: 064
  347. TRAMADOL HYDROCHLORIDE [Concomitant]
     Active Substance: TRAMADOL HYDROCHLORIDE
     Indication: Product used for unknown indication
     Route: 064
  348. TRAMADOL HYDROCHLORIDE [Concomitant]
     Active Substance: TRAMADOL HYDROCHLORIDE
     Route: 064
  349. USTEKINUMAB [Concomitant]
     Active Substance: USTEKINUMAB
     Indication: Product used for unknown indication
     Route: 064
  350. USTEKINUMAB [Concomitant]
     Active Substance: USTEKINUMAB
     Route: 064
  351. USTEKINUMAB [Concomitant]
     Active Substance: USTEKINUMAB
     Route: 064
  352. USTEKINUMAB [Concomitant]
     Active Substance: USTEKINUMAB
     Route: 064
  353. XELJANZ [Concomitant]
     Active Substance: TOFACITINIB CITRATE
     Indication: Product used for unknown indication
     Route: 064
  354. XELJANZ [Concomitant]
     Active Substance: TOFACITINIB CITRATE
     Route: 064
  355. XELJANZ [Concomitant]
     Active Substance: TOFACITINIB CITRATE
     Route: 064
  356. XELJANZ [Concomitant]
     Active Substance: TOFACITINIB CITRATE
     Route: 064
  357. XELJANZ [Concomitant]
     Active Substance: TOFACITINIB CITRATE
     Route: 064
  358. XELJANZ [Concomitant]
     Active Substance: TOFACITINIB CITRATE
     Route: 064
  359. XELJANZ [Concomitant]
     Active Substance: TOFACITINIB CITRATE
     Route: 064
  360. XELJANZ [Concomitant]
     Active Substance: TOFACITINIB CITRATE
     Route: 064
  361. XELJANZ [Concomitant]
     Active Substance: TOFACITINIB CITRATE
     Route: 064
  362. XELJANZ [Concomitant]
     Active Substance: TOFACITINIB CITRATE
     Route: 064
  363. XELJANZ [Concomitant]
     Active Substance: TOFACITINIB CITRATE
     Route: 064
  364. XELJANZ [Concomitant]
     Active Substance: TOFACITINIB CITRATE
     Route: 064
  365. XELJANZ [Concomitant]
     Active Substance: TOFACITINIB CITRATE
     Route: 064
  366. XELJANZ [Concomitant]
     Active Substance: TOFACITINIB CITRATE
     Route: 064
  367. XELJANZ [Concomitant]
     Active Substance: TOFACITINIB CITRATE
     Route: 064
  368. XELJANZ [Concomitant]
     Active Substance: TOFACITINIB CITRATE
     Route: 064
  369. ALENDRONATE SODIUM\CHOLECALCIFEROL [Concomitant]
     Active Substance: ALENDRONATE SODIUM\CHOLECALCIFEROL
     Indication: Product used for unknown indication
     Route: 064
  370. ACETAMINOPHEN\CAFFEINE\CODEINE PHOSPHATE [Concomitant]
     Active Substance: ACETAMINOPHEN\CAFFEINE\CODEINE PHOSPHATE
     Indication: Product used for unknown indication
     Route: 064
  371. DICLOFENAC SODIUM [Concomitant]
     Active Substance: DICLOFENAC SODIUM
     Indication: Product used for unknown indication
     Dosage: TABLET (ENTERIC- COATED)
     Route: 064
  372. ATOMOXETINE HYDROCHLORIDE [Concomitant]
     Active Substance: ATOMOXETINE HYDROCHLORIDE
     Indication: Product used for unknown indication
     Dosage: POWDER FOR?SOLUTION?INTRAVENOUS
     Route: 064
  373. CALCIUM CARBONATE [Concomitant]
     Active Substance: CALCIUM CARBONATE
     Indication: Product used for unknown indication
     Route: 064
  374. DIETARY SUPPLEMENT\MINERALS\VITAMINS [Concomitant]
     Active Substance: DIETARY SUPPLEMENT\MINERALS\VITAMINS
     Indication: Product used for unknown indication
     Dosage: CATAPLEX D TAB 400UNIT
     Route: 064
  375. DIETARY SUPPLEMENT\MINERALS\VITAMINS [Concomitant]
     Active Substance: DIETARY SUPPLEMENT\MINERALS\VITAMINS
     Dosage: CATAPLEX D TAB 400UNIT
     Route: 064
  376. MENTHOL\ZINC OXIDE [Concomitant]
     Active Substance: MENTHOL\ZINC OXIDE
     Indication: Product used for unknown indication
     Route: 064
  377. METFORMIN HYDROCHLORIDE [Concomitant]
     Active Substance: METFORMIN HYDROCHLORIDE
     Indication: Product used for unknown indication
     Route: 064
  378. MYOCHRYSINE [Concomitant]
     Active Substance: GOLD SODIUM THIOMALATE
     Indication: Product used for unknown indication
     Dosage: SOLUTION INTRAMUSCULA
     Route: 064
  379. AESCULUS HIPPOCASTANUM (HORSE CHESTNUT) SEED EXTRACT\AMINOBENZOATE SOD [Concomitant]
     Active Substance: AESCULUS HIPPOCASTANUM (HORSE CHESTNUT) SEED EXTRACT\AMINOBENZOATE SODIUM\HALIBUT LIVER OIL\YEAST
     Indication: Product used for unknown indication
     Route: 064
  380. RANITIDINE HYDROCHLORIDE [Concomitant]
     Active Substance: RANITIDINE HYDROCHLORIDE
     Indication: Product used for unknown indication
     Route: 064
  381. CETIRIZINE HYDROCHLORIDE [Concomitant]
     Active Substance: CETIRIZINE HYDROCHLORIDE
     Indication: Product used for unknown indication
     Route: 064
  382. CETIRIZINE HYDROCHLORIDE [Concomitant]
     Active Substance: CETIRIZINE HYDROCHLORIDE
     Route: 064
  383. CETIRIZINE HYDROCHLORIDE [Concomitant]
     Active Substance: CETIRIZINE HYDROCHLORIDE
     Route: 064
  384. CETIRIZINE HYDROCHLORIDE [Concomitant]
     Active Substance: CETIRIZINE HYDROCHLORIDE
     Route: 064
  385. ACETAMINOPHEN\CODEINE PHOSPHATE [Concomitant]
     Active Substance: ACETAMINOPHEN\CODEINE PHOSPHATE
     Indication: Product used for unknown indication
     Route: 064
  386. ALENDRONATE SODIUM [Concomitant]
     Active Substance: ALENDRONATE SODIUM
     Indication: Product used for unknown indication
     Route: 064
  387. ALENDRONATE SODIUM [Concomitant]
     Active Substance: ALENDRONATE SODIUM
     Route: 064
  388. ALENDRONATE SODIUM\CHOLECALCIFEROL [Concomitant]
     Active Substance: ALENDRONATE SODIUM\CHOLECALCIFEROL
     Indication: Product used for unknown indication
     Route: 064
  389. CALCIUM GLUBIONATE [Concomitant]
     Active Substance: CALCIUM GLUBIONATE
     Indication: Product used for unknown indication
     Route: 064
  390. CORTISONE [Concomitant]
     Active Substance: CORTISONE
     Indication: Product used for unknown indication
     Route: 064
  391. CORTISONE [Concomitant]
     Active Substance: CORTISONE
     Route: 064
  392. DESOGESTREL AND ETHINYL ESTRADIOL [Concomitant]
     Active Substance: DESOGESTREL\ETHINYL ESTRADIOL
     Indication: Product used for unknown indication
     Route: 064
  393. DICLOFENAC POTASSIUM [Concomitant]
     Active Substance: DICLOFENAC POTASSIUM
     Indication: Product used for unknown indication
     Route: 064
  394. DICLOFENAC POTASSIUM [Concomitant]
     Active Substance: DICLOFENAC POTASSIUM
     Route: 064
  395. ERGOCALCIFEROL [Concomitant]
     Active Substance: ERGOCALCIFEROL
     Indication: Product used for unknown indication
     Route: 064
  396. FOLIC ACID [Concomitant]
     Active Substance: FOLIC ACID
     Indication: Product used for unknown indication
     Route: 064
  397. FOLIC ACID [Concomitant]
     Active Substance: FOLIC ACID
     Route: 064
  398. FOLIC ACID [Concomitant]
     Active Substance: FOLIC ACID
     Route: 064
  399. FOLIC ACID [Concomitant]
     Active Substance: FOLIC ACID
     Route: 064
  400. FOLIC ACID [Concomitant]
     Active Substance: FOLIC ACID
     Route: 064
  401. FOLIC ACID [Concomitant]
     Active Substance: FOLIC ACID
     Route: 064
  402. ISOPROPYL ALCOHOL [Concomitant]
     Active Substance: ISOPROPYL ALCOHOL
     Indication: Product used for unknown indication
     Dosage: LIQUID TOPICAL
     Route: 064
  403. NAPROXEN [Concomitant]
     Active Substance: NAPROXEN
     Indication: Product used for unknown indication
     Route: 064
  404. NAPROXEN [Concomitant]
     Active Substance: NAPROXEN
     Route: 064
  405. NEOMYCIN SULFATE [Concomitant]
     Active Substance: NEOMYCIN SULFATE
     Indication: Product used for unknown indication
     Route: 064
  406. PERIOGARD [Concomitant]
     Active Substance: CHLORHEXIDINE GLUCONATE
     Indication: Product used for unknown indication
     Route: 064
  407. RIBOFLAVIN [Concomitant]
     Active Substance: RIBOFLAVIN
     Indication: Product used for unknown indication
     Route: 064
  408. HYDROCORTISONE [Concomitant]
     Active Substance: HYDROCORTISONE
     Indication: Product used for unknown indication
     Route: 064
  409. SULFAMETHOXAZOLE [Concomitant]
     Active Substance: SULFAMETHOXAZOLE
     Indication: Product used for unknown indication
     Route: 064
  410. SULFAMETHOXAZOLE\TRIMETHOPRIM [Concomitant]
     Active Substance: SULFAMETHOXAZOLE\TRIMETHOPRIM
     Indication: Product used for unknown indication
     Route: 064
  411. THIAMINE HYDROCHLORIDE [Concomitant]
     Active Substance: THIAMINE HYDROCHLORIDE
     Indication: Product used for unknown indication
     Route: 064
  412. TUMS [Concomitant]
     Active Substance: CALCIUM CARBONATE
     Indication: Product used for unknown indication
     Route: 064
  413. RETINOL [Concomitant]
     Active Substance: RETINOL
     Indication: Product used for unknown indication
     Route: 064
  414. VITAMIN D3 [Concomitant]
     Active Substance: CHOLECALCIFEROL
     Indication: Product used for unknown indication
     Route: 064
  415. VITAMIN D3 [Concomitant]
     Active Substance: CHOLECALCIFEROL
     Route: 064

REACTIONS (2)
  - Foetal exposure during pregnancy [Unknown]
  - Congenital anomaly [Unknown]
